FAERS Safety Report 21625374 (Version 1)
Quarter: 2022Q4

REPORT INFORMATION
  Report Type: Report from Study
  Country: US (occurrence: US)
  Receive Date: 20221122
  Receipt Date: 20221122
  Transmission Date: 20230113
  Serious: No
  Sender: FDA-Public Use
  Company Number: US-ABBVIE-4173387

PATIENT
  Age: 31 Year
  Sex: Female

DRUGS (1)
  1. SKYRIZI [Suspect]
     Active Substance: RISANKIZUMAB-RZAA
     Indication: Psoriasis
     Dosage: STRENGTH : 150 MILLIGRAM , WEEK 0, WEEK 4 THEN EVERY 12 WEEKS
     Route: 058
     Dates: start: 20220808

REACTIONS (1)
  - Pain [Unknown]

NARRATIVE: CASE EVENT DATE: 20221001
